FAERS Safety Report 5335447-2 (Version None)
Quarter: 2007Q2

REPORT INFORMATION
  Report Type: 
  Country: None (occurrence: None)
  Receive Date: 20070522
  Receipt Date: 20070508
  Transmission Date: 20071010
  Serious: Yes (Other)
  Sender: FDA-Public Use
  Company Number: 02100-JPN-07-0213

PATIENT
  Age: 77 Year
  Sex: Male

DRUGS (9)
  1. CILOSTAZOL [Suspect]
     Indication: CEREBRAL INFARCTION
     Dosage: ONE  OF 200 MG
     Route: 048
     Dates: start: 20050622, end: 20070415
  2. ASPIRIN [Suspect]
     Dosage: 81 MG
     Route: 048
  3. HEPARINOID FROM ANIMAL ORGANS [Concomitant]
  4. INSULIN HUMAN (GENETIC RECOMBINATION) [Concomitant]
  5. LISINOPRIL [Concomitant]
  6. SODIUM PICOSULFATE [Concomitant]
  7. SENNOSIDE [Concomitant]
  8. MOSAPRIDE CITRATE [Concomitant]
  9. ANTIBIOTICS-RESISTANT LACTIC ACID BACTERIAE [Concomitant]

REACTIONS (3)
  - BLOOD GLUCOSE INCREASED [None]
  - HEPATIC NEOPLASM MALIGNANT [None]
  - HYPOGLYCAEMIA [None]
